FAERS Safety Report 12978629 (Version 2)
Quarter: 2019Q1

REPORT INFORMATION
  Report Type: Spontaneous
  Country: US (occurrence: US)
  Receive Date: 20161128
  Receipt Date: 20190109
  Transmission Date: 20190417
  Serious: No
  Sender: FDA-Public Use
  Company Number: US-PFIZER INC-2016547861

PATIENT
  Age: 62 Year
  Sex: Female

DRUGS (1)
  1. XELJANZ XR [Suspect]
     Active Substance: TOFACITINIB CITRATE
     Dosage: 11 MG, UNK

REACTIONS (3)
  - Pain [Unknown]
  - Mobility decreased [Unknown]
  - Musculoskeletal stiffness [Unknown]
